FAERS Safety Report 16109592 (Version 1)
Quarter: 2019Q1

REPORT INFORMATION
  Report Type: Spontaneous
  Country: US (occurrence: US)
  Receive Date: 20190324
  Receipt Date: 20190324
  Transmission Date: 20190418
  Serious: No
  Sender: FDA-Public Use
  Company Number: US-009507513-1903USA008478

PATIENT
  Sex: Male

DRUGS (2)
  1. AVASTIN [Suspect]
     Active Substance: BEVACIZUMAB
  2. TEMODAR [Suspect]
     Active Substance: TEMOZOLOMIDE
     Dosage: 250 MILLIGRAM

REACTIONS (1)
  - Fatigue [Not Recovered/Not Resolved]
